FAERS Safety Report 12621535 (Version 1)
Quarter: 2016Q3

REPORT INFORMATION
  Report Type: Spontaneous
  Country: US (occurrence: None)
  Receive Date: 20160803
  Receipt Date: 20160803
  Transmission Date: 20161109
  Serious: Yes (Hospitalization)
  Sender: FDA-Public Use
  Company Number: None

PATIENT
  Age: 70 Year
  Sex: Male
  Weight: 86.18 kg

DRUGS (9)
  1. CLOPIDOGREL BISUF [Concomitant]
  2. JANUMET [Concomitant]
     Active Substance: METFORMIN HYDROCHLORIDE\SITAGLIPTIN PHOSPHATE
  3. GLIMEPRIDE [Concomitant]
     Active Substance: GLIMEPIRIDE
  4. INSULIN [Concomitant]
     Active Substance: INSULIN NOS
  5. INVOKANA [Suspect]
     Active Substance: CANAGLIFLOZIN
     Indication: DIABETES MELLITUS
     Route: 048
  6. INVOKANA [Concomitant]
     Active Substance: CANAGLIFLOZIN
  7. QUINAPRIL. [Concomitant]
     Active Substance: QUINAPRIL
  8. TOUJEO [Concomitant]
     Active Substance: INSULIN GLARGINE
  9. ELIQUIS [Concomitant]
     Active Substance: APIXABAN

REACTIONS (1)
  - Toe amputation [None]

NARRATIVE: CASE EVENT DATE: 20160509
